FAERS Safety Report 12243209 (Version 1)
Quarter: 2016Q2

REPORT INFORMATION
  Report Type: Spontaneous
  Country: US (occurrence: US)
  Receive Date: 20160406
  Receipt Date: 20160406
  Transmission Date: 20160815
  Serious: No
  Sender: FDA-Public Use
  Company Number: US-SA-2015SA051701

PATIENT
  Sex: Male

DRUGS (4)
  1. ALLEGRA-D [Suspect]
     Active Substance: FEXOFENADINE\PSEUDOEPHEDRINE
     Indication: MULTIPLE ALLERGIES
     Dosage: START DATE: 13 DAYS AGO?END DATE: YESTERDAY
     Route: 048
     Dates: end: 20150416
  2. ALLEGRA-D [Suspect]
     Active Substance: FEXOFENADINE\PSEUDOEPHEDRINE
     Indication: NASAL PRURITUS
     Dosage: START DATE: 13 DAYS AGO?END DATE: YESTERDAY
     Route: 048
     Dates: end: 20150416
  3. ALLEGRA-D [Suspect]
     Active Substance: FEXOFENADINE\PSEUDOEPHEDRINE
     Indication: NASAL CONGESTION
     Dosage: START DATE: 13 DAYS AGO?END DATE: YESTERDAY
     Route: 048
     Dates: end: 20150416
  4. BENADRYL [Suspect]
     Active Substance: DIPHENHYDRAMINE HYDROCHLORIDE
     Indication: MULTIPLE ALLERGIES
     Route: 065

REACTIONS (1)
  - Drug ineffective [Unknown]
